FAERS Safety Report 5416789-9 (Version None)
Quarter: 2007Q3

REPORT INFORMATION
  Report Type: 
  Country: None (occurrence: None)
  Receive Date: 20070816
  Receipt Date: 20070804
  Transmission Date: 20080115
  Serious: Yes (Hospitalization)
  Sender: FDA-Public Use
  Company Number: US-ROCHE-510330

PATIENT
  Age: 26 Year
  Sex: Female

DRUGS (2)
  1. ACCUTANE [Suspect]
     Indication: DRUG USE FOR UNKNOWN INDICATION
     Route: 065
     Dates: start: 20061201, end: 20070501
  2. YASMIN [Concomitant]

REACTIONS (1)
  - NEPHROLITHIASIS [None]
